FAERS Safety Report 9863835 (Version 3)
Quarter: 2014Q2

REPORT INFORMATION
  Report Type: Spontaneous
  Country: US (occurrence: US)
  Receive Date: 20140203
  Receipt Date: 20140501
  Transmission Date: 20141212
  Serious: Yes (Disabling)
  Sender: FDA-Public Use
  Company Number: US-GLAXOSMITHKLINE-A1058524A

PATIENT
  Age: 63 Year
  Sex: Female

DRUGS (2)
  1. VOTRIENT [Suspect]
     Indication: OVARIAN CANCER
     Dosage: 800MG PER DAY
     Route: 048
     Dates: start: 20130715, end: 20140121
  2. NO CONCURRENT MEDICATION [Concomitant]

REACTIONS (3)
  - Hospice care [Unknown]
  - Off label use [Unknown]
  - Disease progression [Unknown]
